FAERS Safety Report 9570935 (Version 1)
Quarter: 2013Q3

REPORT INFORMATION
  Report Type: Spontaneous
  Country: US (occurrence: None)
  Receive Date: 20130927
  Receipt Date: 20130927
  Transmission Date: 20140515
  Serious: Yes (Other)
  Sender: FDA-Public Use
  Company Number: None

PATIENT
  Age: 85 None
  Sex: Male

DRUGS (1)
  1. EXJADE [Suspect]
     Indication: IRON OVERLOAD
     Dosage: 3 TABLETS DAILY ORAL
     Route: 048
     Dates: start: 20130328, end: 20130405

REACTIONS (3)
  - Diarrhoea [None]
  - Nausea [None]
  - Abdominal pain upper [None]
